FAERS Safety Report 18022319 (Version 1)
Quarter: 2020Q3

REPORT INFORMATION
  Report Type: Other
  Country: FR (occurrence: FR)
  Receive Date: 20200714
  Receipt Date: 20200714
  Transmission Date: 20201103
  Serious: Yes (Other)
  Sender: FDA-Public Use
  Company Number: FR-INCYTE CORPORATION-2020IN006406

PATIENT

DRUGS (5)
  1. JAKAVI [Suspect]
     Active Substance: RUXOLITINIB
     Dosage: 20 MG, QD
     Route: 048
     Dates: start: 20191105
  2. VERCYTE [Suspect]
     Active Substance: PIPOBROMAN
     Indication: ESSENTIAL THROMBOCYTHAEMIA
     Dosage: 2 DF, QD
     Route: 048
     Dates: start: 20040913, end: 20110407
  3. HYDREA [Suspect]
     Active Substance: HYDROXYUREA
     Indication: ESSENTIAL THROMBOCYTHAEMIA
     Dosage: 2 DF, QD
     Route: 048
     Dates: start: 20040216, end: 20040913
  4. HYDREA [Suspect]
     Active Substance: HYDROXYUREA
     Dosage: NON RENSEIGN?E
     Route: 048
     Dates: start: 20150107
  5. JAKAVI [Suspect]
     Active Substance: RUXOLITINIB
     Indication: ESSENTIAL THROMBOCYTHAEMIA
     Dosage: 2 DF, QD
     Route: 048
     Dates: start: 20160224, end: 20181031

REACTIONS (3)
  - Condition aggravated [Recovered/Resolved]
  - Actinic keratosis [Recovered/Resolved]
  - Squamous cell carcinoma [Recovered/Resolved]
